FAERS Safety Report 6806348-5 (Version None)
Quarter: 2010Q2

REPORT INFORMATION
  Report Type: 
  Country: None (occurrence: None)
  Receive Date: 20100629
  Receipt Date: 20080305
  Transmission Date: 20101027
  Serious: No
  Sender: FDA-Public Use
  Company Number: US-PFIZER INC-2008005332

PATIENT
  Sex: Female
  Weight: 56.7 kg

DRUGS (1)
  1. TIKOSYN [Suspect]
     Indication: TACHYCARDIA
     Dates: start: 20060101

REACTIONS (5)
  - ADVERSE EVENT [None]
  - DIZZINESS [None]
  - GASTROENTERITIS VIRAL [None]
  - MALAISE [None]
  - UPPER RESPIRATORY TRACT INFECTION [None]
